APPROVED DRUG PRODUCT: AMIFOSTINE
Active Ingredient: AMIFOSTINE
Strength: 500MG/VIAL
Dosage Form/Route: INJECTABLE;INJECTION
Application: A204363 | Product #001
Applicant: EUGIA PHARMA SPECIALITIES LTD
Approved: Jul 17, 2017 | RLD: No | RS: No | Type: DISCN